FAERS Safety Report 14519651 (Version 1)
Quarter: 2018Q1

REPORT INFORMATION
  Report Type: Report from Study
  Country: US (occurrence: US)
  Receive Date: 20180212
  Receipt Date: 20180212
  Transmission Date: 20180509
  Serious: No
  Sender: FDA-Public Use
  Company Number: US-AMAG PHARMACEUTICALS, INC.-AMAG201700965

PATIENT
  Age: 0 Day
  Sex: Female
  Weight: 2.5 kg

DRUGS (1)
  1. MAKENA [Suspect]
     Active Substance: HYDROXYPROGESTERONE CAPROATE
     Indication: EXPOSURE DURING PREGNANCY
     Dosage: UNK
     Route: 065
     Dates: start: 20160827

REACTIONS (3)
  - Umbilical cord around neck [Unknown]
  - Foetal hypokinesia [Unknown]
  - Ultrasound foetal abnormal [Unknown]

NARRATIVE: CASE EVENT DATE: 20170130
